FAERS Safety Report 18346421 (Version 1)
Quarter: 2020Q4

REPORT INFORMATION
  Report Type: Spontaneous
  Country: GB (occurrence: GB)
  Receive Date: 20201006
  Receipt Date: 20201006
  Transmission Date: 20210114
  Serious: Yes (Other)
  Sender: FDA-Public Use
  Company Number: GB-AUROBINDO-AUR-APL-2016-11730

PATIENT
  Age: 25 Year
  Sex: Male

DRUGS (3)
  1. EFAVIRENZ. [Suspect]
     Active Substance: EFAVIRENZ
     Indication: HIV INFECTION
     Dosage: UNK
     Route: 065
  2. LAMIVUDINE. [Concomitant]
     Active Substance: LAMIVUDINE
     Indication: HIV INFECTION
     Dosage: UNK
     Route: 016
  3. TENOFOVIR [Concomitant]
     Active Substance: TENOFOVIR
     Indication: HIV INFECTION
     Dosage: UNK
     Route: 065

REACTIONS (8)
  - Hallucinations, mixed [Recovered/Resolved]
  - Chromaturia [Recovered/Resolved]
  - Vomiting [Recovered/Resolved]
  - Abdominal tenderness [Recovered/Resolved]
  - Pain [Recovered/Resolved]
  - Porphyria acute [Recovered/Resolved]
  - Constipation [Recovered/Resolved]
  - Abdominal pain lower [Recovered/Resolved]
